FAERS Safety Report 20126211 (Version 1)
Quarter: 2021Q4

REPORT INFORMATION
  Report Type: Spontaneous
  Country: US (occurrence: US)
  Receive Date: 20211129
  Receipt Date: 20211129
  Transmission Date: 20220304
  Serious: Yes (Other)
  Sender: FDA-Public Use
  Company Number: US-GLAXOSMITHKLINE-US2021GSK244918

PATIENT
  Sex: Male

DRUGS (7)
  1. ZANTAC [Suspect]
     Active Substance: RANITIDINE HYDROCHLORIDE
     Indication: Gastrooesophageal reflux disease
     Dosage: 150 MG, QD, 1 - 2 TIMES A DAY
     Route: 065
     Dates: start: 201606, end: 201908
  2. ZANTAC [Suspect]
     Active Substance: RANITIDINE HYDROCHLORIDE
     Indication: Gastrooesophageal reflux disease
     Dosage: 150 MG, QD, 1 - 2 TIMES A DAY
     Route: 065
     Dates: start: 201606, end: 201908
  3. ZANTAC [Suspect]
     Active Substance: RANITIDINE HYDROCHLORIDE
     Indication: Gastrooesophageal reflux disease
     Dosage: 150 MG, QD, 1 - 2 TIMES A DAY
     Route: 065
     Dates: start: 201606, end: 201908
  4. RANITIDINE [Suspect]
     Active Substance: RANITIDINE
     Indication: Gastrooesophageal reflux disease
     Dosage: 150 MG, QD, 1 - 2 TIMES A DAY
     Route: 065
     Dates: start: 201606, end: 201908
  5. RANITIDINE [Suspect]
     Active Substance: RANITIDINE
     Indication: Gastrooesophageal reflux disease
     Dosage: 150 MG, QD, 1 - 2 TIMES A DAY
     Route: 065
     Dates: start: 201606, end: 201908
  6. RANITIDINE HYDROCHLORIDE [Suspect]
     Active Substance: RANITIDINE HYDROCHLORIDE
     Indication: Gastrooesophageal reflux disease
     Dosage: 150 MG, QD, 1 - 2 TIMES A DAY
     Route: 065
     Dates: start: 201606, end: 201908
  7. RANITIDINE HYDROCHLORIDE [Suspect]
     Active Substance: RANITIDINE HYDROCHLORIDE
     Indication: Gastrooesophageal reflux disease
     Dosage: 150 MG, QD, 1 - 2 TIMES A DAY
     Route: 065
     Dates: start: 201606, end: 201908

REACTIONS (1)
  - Gastrointestinal carcinoma [Unknown]
